FAERS Safety Report 13339282 (Version 2)
Quarter: 2017Q1

REPORT INFORMATION
  Report Type: Spontaneous
  Country: US (occurrence: US)
  Receive Date: 20170315
  Receipt Date: 20170315
  Transmission Date: 20170428
  Serious: Yes (Other)
  Sender: FDA-Public Use
  Company Number: US-CELGENEUS-USA-2017034998

PATIENT
  Sex: Female
  Weight: 46.31 kg

DRUGS (5)
  1. CYCLOBENZAPRINE [Concomitant]
     Active Substance: CYCLOBENZAPRINE
     Indication: PRODUCT USED FOR UNKNOWN INDICATION
     Route: 065
  2. THALOMID [Suspect]
     Active Substance: THALIDOMIDE
     Dosage: 200 MILLIGRAM
     Route: 048
     Dates: start: 20170206
  3. TYLENOL [Concomitant]
     Active Substance: ACETAMINOPHEN
     Indication: PAIN
     Route: 065
  4. THALOMID [Suspect]
     Active Substance: THALIDOMIDE
     Indication: SYSTEMIC LUPUS ERYTHEMATOSUS
     Dosage: 50 MILLIGRAM
     Route: 048
     Dates: start: 201406
  5. THALOMID [Suspect]
     Active Substance: THALIDOMIDE
     Dosage: 100-50 MG
     Route: 048
     Dates: start: 201411

REACTIONS (2)
  - Panic attack [Not Recovered/Not Resolved]
  - Pain [Not Recovered/Not Resolved]
